FAERS Safety Report 9837247 (Version 3)
Quarter: 2016Q2

REPORT INFORMATION
  Report Type: Spontaneous
  Country: JP (occurrence: JP)
  Receive Date: 20140123
  Receipt Date: 20160622
  Transmission Date: 20160815
  Serious: Yes (Death)
  Sender: FDA-Public Use
  Company Number: JP-PFIZER INC-2014019505

PATIENT
  Age: 74 Year
  Sex: Male

DRUGS (5)
  1. 5-FU [Concomitant]
     Active Substance: FLUOROURACIL
     Indication: SQUAMOUS CELL CARCINOMA
     Dosage: UNK, CYCLIC
     Route: 040
  2. 5-FU [Concomitant]
     Active Substance: FLUOROURACIL
     Dosage: CONTINUOUS INFUSION, CYCLIC
     Route: 041
  3. ERBITUX [Concomitant]
     Active Substance: CETUXIMAB
     Indication: SQUAMOUS CELL CARCINOMA
     Dosage: 600 MG/BODY ON DAY1, CYCLIC
     Dates: start: 201203, end: 201205
  4. CAMPTO [Suspect]
     Active Substance: IRINOTECAN
     Indication: SQUAMOUS CELL CARCINOMA OF SKIN
     Dosage: UNK, ONCE A DAY, CYCLIC
     Route: 041
  5. ERBITUX [Concomitant]
     Active Substance: CETUXIMAB
     Dosage: 400MG/BODY ON DAY 22 AND 43, CYCLIC
     Dates: start: 201203, end: 201205

REACTIONS (1)
  - Pneumonia [Fatal]
